FAERS Safety Report 7574189-X (Version None)
Quarter: 2011Q2

REPORT INFORMATION
  Report Type: 
  Country: None (occurrence: None)
  Receive Date: 20110627
  Receipt Date: 20110623
  Transmission Date: 20111010
  Serious: Yes (Life-Threatening, Other)
  Sender: FDA-Public Use
  Company Number: PHHY2011US56085

PATIENT
  Sex: Male

DRUGS (1)
  1. AFINITOR [Suspect]
     Indication: MALIGNANT URINARY TRACT NEOPLASM
     Dosage: 10 MG, QD
     Route: 048
     Dates: start: 20110523

REACTIONS (5)
  - FEELING ABNORMAL [None]
  - HYPOPHAGIA [None]
  - MALAISE [None]
  - PANIC ATTACK [None]
  - DYSPNOEA [None]
